FAERS Safety Report 5403806-5 (Version None)
Quarter: 2007Q3

REPORT INFORMATION
  Report Type: 
  Country: None (occurrence: None)
  Receive Date: 20070706
  Receipt Date: 20060809
  Transmission Date: 20080115
  Serious: Yes (Other)
  Sender: FDA-Public Use
  Company Number: 459070

PATIENT
  Age: 64 Year
  Sex: Male
  Weight: 83.9 kg

DRUGS (4)
  1. CELLCEPT [Suspect]
     Indication: MYASTHENIA GRAVIS
     Dosage: 750 MG 2 PER DAY ORAL
     Route: 048
     Dates: start: 20040716
  2. PYRIDOSTIGMINE (PYRIDOSTIGMINE BROMIDE) [Concomitant]
  3. NOVOLIN (INSULIN HUMAN) [Concomitant]
  4. RANITIDINE [Concomitant]

REACTIONS (1)
  - BASAL CELL CARCINOMA [None]
